FAERS Safety Report 12806601 (Version 1)
Quarter: 2016Q4

REPORT INFORMATION
  Report Type: Spontaneous
  Country: US (occurrence: US)
  Receive Date: 20161004
  Receipt Date: 20161004
  Transmission Date: 20170207
  Serious: Yes (Other)
  Sender: FDA-Public Use
  Company Number: US-LUNDBECK-DKLU2020253

PATIENT
  Age: 52 Year
  Sex: Female

DRUGS (1)
  1. ONFI [Suspect]
     Active Substance: CLOBAZAM
     Indication: SEIZURE
     Route: 065
     Dates: start: 20160919, end: 20160922

REACTIONS (8)
  - Abnormal behaviour [Unknown]
  - Pain [Unknown]
  - Withdrawal syndrome [Unknown]
  - Erythema [Unknown]
  - Drug ineffective [Unknown]
  - Suicidal ideation [Unknown]
  - Drug withdrawal convulsions [Unknown]
  - Fatigue [Unknown]

NARRATIVE: CASE EVENT DATE: 201609
